FAERS Safety Report 19506595 (Version 1)
Quarter: 2021Q3

REPORT INFORMATION
  Report Type: Report from Study
  Country: US (occurrence: US)
  Receive Date: 20210708
  Receipt Date: 20210708
  Transmission Date: 20211014
  Serious: Yes (Hospitalization, Other)
  Sender: FDA-Public Use
  Company Number: US-SA-2019SA198954

PATIENT
  Age: 69 Year
  Sex: Female

DRUGS (3)
  1. DUPILUMAB [Suspect]
     Active Substance: DUPILUMAB
     Dosage: 300 MG, QOW
     Route: 058
     Dates: start: 20190725, end: 20190907
  2. PARACETAMOL [Suspect]
     Active Substance: ACETAMINOPHEN
     Dosage: UNK
     Route: 065
     Dates: start: 20190801
  3. DUPILUMAB [Suspect]
     Active Substance: DUPILUMAB
     Indication: ASTHMA
     Dosage: 600 MG, 1X
     Route: 058
     Dates: start: 20190711, end: 20190711

REACTIONS (19)
  - Glaucoma [Unknown]
  - Atrial fibrillation [Unknown]
  - Cardiac disorder [Unknown]
  - Therapeutic response unexpected [Unknown]
  - Cough [Unknown]
  - Medical device removal [Unknown]
  - Dysphonia [Unknown]
  - Cough [Not Recovered/Not Resolved]
  - Wheezing [Unknown]
  - Throat irritation [Unknown]
  - Condition aggravated [Unknown]
  - Headache [Not Recovered/Not Resolved]
  - Dyspnoea [Unknown]
  - Product dose omission issue [Unknown]
  - Wrist fracture [Unknown]
  - Haemorrhage [Unknown]
  - Head injury [Not Recovered/Not Resolved]
  - Pruritus [Unknown]
  - Product use issue [Unknown]

NARRATIVE: CASE EVENT DATE: 2019
